FAERS Safety Report 16710888 (Version 1)
Quarter: 2019Q3

REPORT INFORMATION
  Report Type: Spontaneous
  Country: ES (occurrence: ES)
  Receive Date: 20190816
  Receipt Date: 20190816
  Transmission Date: 20191004
  Serious: Yes (Other)
  Sender: FDA-Public Use
  Company Number: ES-PFIZER INC-2019350230

PATIENT
  Age: 88 Year
  Sex: Male

DRUGS (18)
  1. OMEPRAZOLE. [Concomitant]
     Active Substance: OMEPRAZOLE
     Dosage: 28 CAPSULES
     Route: 048
  2. FUROSEMIDE. [Concomitant]
     Active Substance: FUROSEMIDE
     Dosage: 30 TABLETS
     Route: 048
  3. PREDNISONE. [Concomitant]
     Active Substance: PREDNISONE
     Indication: ARTHROPATHY
     Dosage: 5 MG, QD VARIABLE DOSE, LATELY 1 / 24H
     Route: 048
     Dates: start: 2011
  4. ELIQUIS [Interacting]
     Active Substance: APIXABAN
     Indication: PROPHYLAXIS
     Dosage: 5 MG, BID 60 TABLETS
     Route: 048
     Dates: start: 20181029, end: 20190724
  5. ELIQUIS [Interacting]
     Active Substance: APIXABAN
     Indication: ARRHYTHMIA PROPHYLAXIS
  6. MIRTAZAPINA STADA [Interacting]
     Active Substance: MIRTAZAPINE
     Indication: DEPRESSION
     Dosage: 30 MG, QD 30 TABLETS
     Route: 048
     Dates: start: 20160209
  7. VENTOLIN [Concomitant]
     Active Substance: ALBUTEROL SULFATE
     Dosage: UNK
     Route: 055
  8. DEMILOS [Concomitant]
     Active Substance: CALCIUM CARBONATE\CHOLECALCIFEROL
     Dosage: 30 TABLETS
     Route: 002
  9. CLOVATE [ACICLOVIR] [Concomitant]
     Active Substance: ACYCLOVIR
     Dosage: UNK
     Route: 003
  10. ORAMORPH SR SUSTAINED RELEASE [Concomitant]
     Active Substance: MORPHINE SULFATE
     Dosage: UNK
     Route: 048
  11. STRIVERDI RESPIMAT [Concomitant]
     Active Substance: OLODATEROL HYDROCHLORIDE
     Dosage: UNK
     Route: 055
  12. ATROVENT [Concomitant]
     Active Substance: IPRATROPIUM BROMIDE
     Dosage: UNK
     Route: 055
  13. TRANGOREX [Suspect]
     Active Substance: AMIODARONE HYDROCHLORIDE
     Indication: ARRHYTHMIA
     Dosage: 200 MG, 2X/DAY (1/12H)
     Route: 048
     Dates: start: 201809, end: 20181002
  14. TRANGOREX [Interacting]
     Active Substance: AMIODARONE HYDROCHLORIDE
     Dosage: 200 MG, 1X/DAY (1/24H)
  15. NOLOTIL [METAMIZOLE MAGNESIUM] [Interacting]
     Active Substance: METAMIZOLE MAGNESIUM
     Indication: BACK PAIN
     Dosage: 575 MILLIGRAM, Q8H
     Route: 048
     Dates: start: 20190506
  16. LORAZEPAM. [Concomitant]
     Active Substance: LORAZEPAM
     Dosage: 25 TABLETS
     Route: 048
  17. PARACETAMOL [Concomitant]
     Active Substance: ACETAMINOPHEN
     Dosage: 40 TABLETS
     Route: 048
  18. PROLIA [Concomitant]
     Active Substance: DENOSUMAB
     Dosage: 60 MILLIGRAM, Q6MO (SEMESTRAL)
     Route: 058
     Dates: start: 201901

REACTIONS (4)
  - Anaemia [Recovering/Resolving]
  - Haematoma [Recovering/Resolving]
  - Intentional product use issue [Unknown]
  - Drug interaction [Unknown]

NARRATIVE: CASE EVENT DATE: 20190716
